FAERS Safety Report 14202703 (Version 9)
Quarter: 2023Q1

REPORT INFORMATION
  Report Type: Spontaneous
  Country: GB (occurrence: GB)
  Receive Date: 20171118
  Receipt Date: 20230303
  Transmission Date: 20230417
  Serious: Yes (Other)
  Sender: FDA-Public Use
  Company Number: None

PATIENT
  Age: 17 Year
  Sex: Female

DRUGS (22)
  1. DOCETAXEL [Suspect]
     Active Substance: DOCETAXEL
     Indication: Desmoplastic small round cell tumour
     Dosage: 3 LINES OF CHEMOTHERAPY
  2. GEMCITABINE [Suspect]
     Active Substance: GEMCITABINE
     Indication: Desmoplastic small round cell tumour
     Dosage: UNK 3 LINES OF CHEMOTHERAPY
  3. IRINOTECAN [Suspect]
     Active Substance: IRINOTECAN
     Indication: Desmoplastic small round cell tumour
     Dosage: UNK 3 LINES OF CHEMOTHERAPY
  4. TEMOZOLOMIDE [Suspect]
     Active Substance: TEMOZOLOMIDE
     Indication: Desmoplastic small round cell tumour
     Dosage: 3 LINES OF CHEMOTHERAPY
  5. TOPOTECAN [Suspect]
     Active Substance: TOPOTECAN HYDROCHLORIDE
     Indication: Desmoplastic small round cell tumour
     Dosage: UNK 3 LINES OF CHEMOTHERAPY
  6. ONDANSETRON [Suspect]
     Active Substance: ONDANSETRON
     Indication: Product used for unknown indication
     Dosage: 8 MILLIGRAM, PRN
  7. DOXORUBICIN [Suspect]
     Active Substance: DOXORUBICIN
     Indication: Desmoplastic small round cell tumour
     Dosage: 1 UNIT, 4 CYCLES  CYCLICAL
  8. VINORELBINE [Suspect]
     Active Substance: VINORELBINE TARTRATE
     Indication: Desmoplastic small round cell tumour
     Dosage: DOSE: 1?4 CYCLES, MAINTENANCE THERAPY
  9. CYCLOPHOSPHAMIDE [Suspect]
     Active Substance: CYCLOPHOSPHAMIDE
     Indication: Desmoplastic small round cell tumour
     Dosage: 3 LINES OF CHEMOTHERAPY?DOSE : 1?4 CYCLES, MAINTENANCE THERAPY
  10. VINCRISTINE [Suspect]
     Active Substance: VINCRISTINE
     Indication: Desmoplastic small round cell tumour
     Dosage: DOSE: 1?4 CYCLES?THREE LINES OF CHEMOTHERAPY
     Route: 042
  11. ACTINOMYCIN D [Suspect]
     Active Substance: DACTINOMYCIN
     Indication: Desmoplastic small round cell tumour
     Dosage: UNK UNK, IVA 5 CYCLE
     Route: 042
  12. CYCLIZINE [Suspect]
     Active Substance: CYCLIZINE
     Indication: Product used for unknown indication
     Dosage: 50 MG, PRN
  13. MELATONIN [Suspect]
     Active Substance: MELATONIN
     Indication: Product used for unknown indication
     Dosage: 6 MG, QD
  14. IRINOTECAN [Suspect]
     Active Substance: IRINOTECAN
     Indication: Desmoplastic small round cell tumour
  15. IFOSFAMIDE [Suspect]
     Active Substance: IFOSFAMIDE
     Indication: Product used for unknown indication
     Dosage: 1 UNIT, FIVE CYCLES  CYCLICAL, STRENGTH: 2 MG
  16. SULFAMETHOXAZOLE\TRIMETHOPRIM [Suspect]
     Active Substance: SULFAMETHOXAZOLE\TRIMETHOPRIM
     Indication: Product used for unknown indication
     Dosage: 480 MG, BID, SATURDAY AND SUNDAY?960 MG DAILY
  17. DOXORUBICIN HYDROCHLORIDE [Suspect]
     Active Substance: DOXORUBICIN HYDROCHLORIDE
     Indication: Desmoplastic small round cell tumour
  18. IRINOTECAN HYDROCHLORIDE [Suspect]
     Active Substance: IRINOTECAN HYDROCHLORIDE
     Indication: Malignant neoplasm progression
  19. PAZOPANIB [Concomitant]
     Active Substance: PAZOPANIB
     Indication: Product used for unknown indication
  20. ONDANSETRON [Concomitant]
     Active Substance: ONDANSETRON
     Indication: Product used for unknown indication
     Dosage: 8 MG, AS REQ^D
     Route: 065
  21. DOXORUBICIN [Concomitant]
     Active Substance: DOXORUBICIN
     Dosage: 1 IU, 4 CYCLES CYCLICAL
  22. IRINOTECAN HYDROCHLORIDE [Suspect]
     Active Substance: IRINOTECAN HYDROCHLORIDE
     Indication: Desmoplastic small round cell tumour
     Dosage: 3 LINES OF CHEMOTHERAPY

REACTIONS (7)
  - Ascites [Recovering/Resolving]
  - Therapeutic product effect incomplete [Unknown]
  - Off label use [Unknown]
  - Desmoplastic small round cell tumour [Unknown]
  - Malignant neoplasm progression [Unknown]
  - Disease progression [Unknown]
  - Drug ineffective [Unknown]

NARRATIVE: CASE EVENT DATE: 20170101
